FAERS Safety Report 18283260 (Version 1)
Quarter: 2020Q3

REPORT INFORMATION
  Report Type: Spontaneous
  Country: US (occurrence: US)
  Receive Date: 20200918
  Receipt Date: 20200918
  Transmission Date: 20201103
  Serious: No
  Sender: FDA-Public Use
  Company Number: US-SUNOVION-2020SUN002663

PATIENT
  Sex: Female

DRUGS (1)
  1. LATUDA [Suspect]
     Active Substance: LURASIDONE HYDROCHLORIDE
     Indication: DEPRESSION SUICIDAL
     Dosage: 40 MG
     Route: 048

REACTIONS (3)
  - Nausea [Unknown]
  - Maternal exposure during pregnancy [Unknown]
  - Off label use [Unknown]
